FAERS Safety Report 11358026 (Version 1)
Quarter: 2015Q3

REPORT INFORMATION
  Report Type: Spontaneous
  Country: US (occurrence: US)
  Receive Date: 20150803
  Receipt Date: 20150803
  Transmission Date: 20151125
  Serious: No
  Sender: FDA-Public Use
  Company Number: US-ELI_LILLY_AND_COMPANY-US200909004944

PATIENT

DRUGS (1)
  1. STRATTERA [Suspect]
     Active Substance: ATOMOXETINE HYDROCHLORIDE
     Dosage: 80 MG, UNK
     Dates: start: 20081211

REACTIONS (6)
  - Drug ineffective [Unknown]
  - Potentiating drug interaction [Unknown]
  - Tachyphrenia [Unknown]
  - Adverse event [Unknown]
  - Abnormal dreams [Unknown]
  - Peripheral coldness [Unknown]

NARRATIVE: CASE EVENT DATE: 200812
